FAERS Safety Report 7275500-X (Version None)
Quarter: 2011Q1

REPORT INFORMATION
  Report Type: 
  Country: None (occurrence: None)
  Receive Date: 20110204
  Receipt Date: 20110125
  Transmission Date: 20110831
  Serious: Yes (Other)
  Sender: FDA-Public Use
  Company Number: CA-JNJFOC-20110200638

PATIENT
  Sex: Male
  Weight: 39.42 kg

DRUGS (4)
  1. REMICADE [Suspect]
     Route: 042
  2. REMICADE [Suspect]
     Indication: CROHN'S DISEASE
     Dosage: 5TH INFUSION
     Route: 042
  3. REMICADE [Suspect]
     Dosage: 3RD INFUSION
     Route: 042
  4. IMMUNOSUPPRESANT [Suspect]
     Indication: ILL-DEFINED DISORDER

REACTIONS (4)
  - INCORRECT DRUG ADMINISTRATION RATE [None]
  - CHEST DISCOMFORT [None]
  - INFUSION RELATED REACTION [None]
  - ANAPHYLACTIC REACTION [None]
